FAERS Safety Report 6730318-9 (Version None)
Quarter: 2010Q2

REPORT INFORMATION
  Report Type: 
  Country: None (occurrence: None)
  Receive Date: 20100518
  Receipt Date: 20100512
  Transmission Date: 20101027
  Serious: Yes (Death)
  Sender: FDA-Public Use
  Company Number: US-ROCHE-703112

PATIENT
  Sex: Male

DRUGS (1)
  1. XELODA [Suspect]
     Indication: SMALL INTESTINE CARCINOMA
     Dosage: DOSAGE REGIMEN: 500 MG, 3 TABS QAM, 3 TABS QPM
     Route: 048
     Dates: start: 20090801, end: 20090901

REACTIONS (1)
  - DEATH [None]
